FAERS Safety Report 23967547 (Version 1)
Quarter: 2024Q2

REPORT INFORMATION
  Report Type: Spontaneous
  Country: PT (occurrence: PT)
  Receive Date: 20240612
  Receipt Date: 20240612
  Transmission Date: 20240716
  Serious: Yes (Life-Threatening, Hospitalization, Other)
  Sender: FDA-Public Use
  Company Number: PT-drreddys-USA/POR/21/0135914

PATIENT
  Age: 56 Year
  Sex: Female

DRUGS (9)
  1. CYTARABINE [Suspect]
     Active Substance: CYTARABINE
     Indication: Acute myeloid leukaemia
     Dosage: FOR 10 DAYS PER CYCLE (LOW DOSE )
     Route: 058
  2. CYTARABINE [Suspect]
     Active Substance: CYTARABINE
     Dosage: 40 MILLIGRAM, QD
     Route: 058
     Dates: start: 20190805, end: 20190814
  3. AZACITIDINE [Suspect]
     Active Substance: AZACITIDINE
     Indication: Acute myeloid leukaemia
     Dosage: UNK
     Route: 065
  4. GLASDEGIB [Suspect]
     Active Substance: GLASDEGIB
     Indication: Acute myeloid leukaemia
     Dosage: 1100 MILLIGRAM
     Route: 065
  5. GLASDEGIB [Suspect]
     Active Substance: GLASDEGIB
     Dosage: 100 MILLIGRAM, QD (100 MG, 1X/DAY)
     Route: 048
     Dates: start: 20190506, end: 20190526
  6. ATOVAQUONE [Concomitant]
     Active Substance: ATOVAQUONE
     Indication: Prophylaxis
     Dosage: 1500 MILLIGRAM, QD
     Route: 065
     Dates: start: 20190506
  7. LEVOFLOXACIN [Concomitant]
     Active Substance: LEVOFLOXACIN
     Indication: Prophylaxis
     Dosage: 500 MILLIGRAM, QD (500 MG, 1X/DAY )
     Route: 048
     Dates: start: 20190729
  8. RANITIDINE [Concomitant]
     Active Substance: RANITIDINE
     Indication: Prophylaxis against gastrointestinal ulcer
     Dosage: 150 MILLIGRAM, QD (150 MG, 1X/DAY)
     Route: 048
     Dates: start: 20190506
  9. ITRACONAZOLE [Concomitant]
     Active Substance: ITRACONAZOLE
     Indication: Prophylaxis
     Dosage: 400 MILLIGRAM, QD (400 MG, QD(200 MG, 2X/DAY (12/12 H))
     Route: 048
     Dates: start: 20190506

REACTIONS (3)
  - Toxicity to various agents [Unknown]
  - Febrile neutropenia [Unknown]
  - Mucosal inflammation [Unknown]

NARRATIVE: CASE EVENT DATE: 20190820
